FAERS Safety Report 12460772 (Version 1)
Quarter: 2016Q2

REPORT INFORMATION
  Report Type: Not Available
  Country: US (occurrence: US)
  Receive Date: 20160613
  Receipt Date: 20160613
  Transmission Date: 20160815
  Serious: No
  Sender: FDA-Public Use
  Company Number: US-ANIPHARMA-2015-US-001372

PATIENT
  Age: 73 Year
  Sex: Female

DRUGS (1)
  1. INDERAL LA [Suspect]
     Active Substance: PROPRANOLOL HYDROCHLORIDE
     Dosage: ONE 80MG CAPSULE DAILY
     Route: 048
     Dates: start: 201510

REACTIONS (3)
  - Nasopharyngitis [Unknown]
  - Sinus operation [Unknown]
  - Ventricular tachycardia [Unknown]
